FAERS Safety Report 8538575-3 (Version None)
Quarter: 2012Q3

REPORT INFORMATION
  Report Type: 
  Country: None (occurrence: None)
  Receive Date: 20120718
  Receipt Date: 20120718
  Transmission Date: 20120928
  Serious: Yes (Life-Threatening, Hospitalization)
  Sender: FDA-Public Use
  Company Number: None

PATIENT
  Sex: Female
  Weight: 78.9259 kg

DRUGS (1)
  1. LISINOPRIL [Suspect]
     Indication: HYPERTENSION
     Dosage: 1 PER DAY
     Dates: start: 20110510, end: 20110621

REACTIONS (5)
  - DYSPNOEA [None]
  - BLOOD PRESSURE DECREASED [None]
  - SPEECH DISORDER [None]
  - COUGH [None]
  - HEART RATE INCREASED [None]
